FAERS Safety Report 5413216-2 (Version None)
Quarter: 2007Q3

REPORT INFORMATION
  Report Type: 
  Country: None (occurrence: None)
  Receive Date: 20070814
  Receipt Date: 20070807
  Transmission Date: 20080115
  Serious: Yes (Other)
  Sender: FDA-Public Use
  Company Number: PHBS2007JP11732

PATIENT
  Age: 70 Year
  Sex: Male
  Weight: 58 kg

DRUGS (7)
  1. DIOVAN [Suspect]
     Indication: HYPERTENSION
     Dosage: 40 MG/DAY
     Route: 048
     Dates: start: 20070109, end: 20070129
  2. DIOVAN [Suspect]
     Dosage: 80 MG/DAY
     Route: 048
     Dates: start: 20070130, end: 20070423
  3. DIOVAN [Suspect]
     Dosage: 160 MG/DAY
     Route: 048
     Dates: start: 20070424, end: 20070629
  4. MEPTIN [Concomitant]
     Dosage: 2 DF, UNK
     Dates: end: 20070529
  5. ROHYPNOL [Concomitant]
     Dosage: 2 DF, UNK
     Dates: start: 20070220, end: 20070522
  6. THEO-DUR [Concomitant]
     Dates: end: 20070109
  7. ANTOBRON [Concomitant]
     Dates: end: 20070109

REACTIONS (11)
  - BRONCHITIS CHRONIC [None]
  - C-REACTIVE PROTEIN INCREASED [None]
  - DRUG ERUPTION [None]
  - EMPHYSEMA [None]
  - HYPOTENSION [None]
  - NASOPHARYNGITIS [None]
  - PRODUCTIVE COUGH [None]
  - PROSTATIC SPECIFIC ANTIGEN INCREASED [None]
  - PRURIGO [None]
  - PRURITUS [None]
  - WHITE BLOOD CELL COUNT DECREASED [None]
